FAERS Safety Report 9800685 (Version 1)
Quarter: 2014Q1

REPORT INFORMATION
  Report Type: Spontaneous
  Country: FR (occurrence: FR)
  Receive Date: 20140107
  Receipt Date: 20140107
  Transmission Date: 20141002
  Serious: Yes (Hospitalization)
  Sender: FDA-Public Use
  Company Number: FR-ROCHE-1329719

PATIENT
  Age: 76 Year
  Sex: Female

DRUGS (14)
  1. ZELBORAF [Suspect]
     Indication: METASTATIC MALIGNANT MELANOMA
     Dosage: 8 DF
     Route: 048
     Dates: start: 20130318
  2. ZELBORAF [Suspect]
     Route: 048
     Dates: start: 20130424, end: 20130429
  3. ZELBORAF [Suspect]
     Route: 048
  4. PRIMPERAN (FRANCE) [Concomitant]
     Indication: NAUSEA
     Route: 048
     Dates: end: 20130503
  5. SOLUPRED (FRANCE) [Concomitant]
     Route: 065
  6. SOLUPRED (FRANCE) [Concomitant]
     Route: 065
  7. KARDEGIC [Concomitant]
  8. INEXIUM [Concomitant]
  9. TAHOR [Concomitant]
  10. DOLIPRANE [Concomitant]
     Route: 065
  11. CONTRAMAL [Concomitant]
     Route: 065
  12. LEXOMIL [Concomitant]
     Route: 065
  13. PRETERAX [Concomitant]
     Route: 065
  14. DIFFU K [Concomitant]
     Dosage: 3/DAY
     Route: 065

REACTIONS (3)
  - Rash maculo-papular [Recovered/Resolved]
  - Nausea [Unknown]
  - Confusional state [Unknown]
